FAERS Safety Report 4294050-6 (Version None)
Quarter: 2004Q1

REPORT INFORMATION
  Report Type: 
  Country: None (occurrence: None)
  Receive Date: 20040211
  Receipt Date: 20040126
  Transmission Date: 20041129
  Serious: Yes (Other)
  Sender: FDA-Public Use
  Company Number: A-US2004-05015

PATIENT
  Age: 61 Year
  Sex: Female
  Weight: 68 kg

DRUGS (10)
  1. TRACLEER [Suspect]
     Indication: PULMONARY HYPERTENSION
     Dosage: 62.5 MG, BID; ORAL
     Route: 048
     Dates: start: 20031219, end: 20031231
  2. SALOZOPYRIN [Concomitant]
  3. OMEPRAZOLE [Concomitant]
  4. FUROSEMIDE [Concomitant]
  5. NIFEDIPINE [Concomitant]
  6. PREDNISONE [Concomitant]
  7. METFORMIN HCL [Concomitant]
  8. PREMARIN [Concomitant]
  9. VOLTAREN [Concomitant]
  10. VITAMIN B COMPLEX CAP [Concomitant]

REACTIONS (7)
  - DERMATITIS ALLERGIC [None]
  - HEADACHE [None]
  - HOT FLUSH [None]
  - RASH [None]
  - RASH ERYTHEMATOUS [None]
  - RASH PRURITIC [None]
  - VOMITING [None]
